FAERS Safety Report 10562256 (Version 1)
Quarter: 2014Q4

REPORT INFORMATION
  Report Type: Spontaneous
  Country: US (occurrence: None)
  Receive Date: 20141031
  Receipt Date: 20141031
  Transmission Date: 20150529
  Serious: Yes (Other)
  Sender: FDA-Public Use
  Company Number: US-H14001-14-01291

PATIENT
  Age: 58 Year
  Sex: Female

DRUGS (8)
  1. TRIAMTERENE. [Concomitant]
     Active Substance: TRIAMTERENE
  2. LOTREL (AMLODIPINE BESYLATE W/BENAZEPRIL HYDROCHLORIDE) (UNKNOWN) (BENZAPRIL HYDROCHLORIDE, AMLODIPINE BESILATE) [Concomitant]
  3. TRAMADOL [Concomitant]
     Active Substance: TRAMADOL
  4. CLONIDINE. [Concomitant]
     Active Substance: CLONIDINE
  5. DICLOFENAC SODIUM. [Concomitant]
     Active Substance: DICLOFENAC SODIUM
  6. KEFLEX [Suspect]
     Active Substance: CEPHALEXIN
     Indication: KIDNEY INFECTION
     Dates: start: 2014, end: 2014
  7. IBUPROFEN. [Concomitant]
     Active Substance: IBUPROFEN
  8. CIPROFLOXACIN. [Suspect]
     Active Substance: CIPROFLOXACIN
     Indication: KIDNEY INFECTION
     Route: 048
     Dates: start: 20140821, end: 201408

REACTIONS (9)
  - Headache [None]
  - Urethral discharge [None]
  - Feeling abnormal [None]
  - Weight decreased [None]
  - Back pain [None]
  - Treatment noncompliance [None]
  - Chest discomfort [None]
  - Diarrhoea [None]
  - Haematochezia [None]

NARRATIVE: CASE EVENT DATE: 2014
